FAERS Safety Report 6748772-5 (Version None)
Quarter: 2010Q2

REPORT INFORMATION
  Report Type: 
  Country: None (occurrence: None)
  Receive Date: 20100601
  Receipt Date: 20100519
  Transmission Date: 20101027
  Serious: Yes (Other)
  Sender: FDA-Public Use
  Company Number: PHHY2010JP32756

PATIENT

DRUGS (4)
  1. DIOVAN [Suspect]
     Indication: HYPERTENSION
     Dosage: UNK
     Route: 048
  2. BUFERIN [Concomitant]
     Dosage: 81 MG, UNK
     Route: 048
     Dates: start: 20000401
  3. MEXITIL [Concomitant]
     Dosage: UNK
     Dates: start: 20000401
  4. HERBESSOR R [Concomitant]
     Dosage: 100 MG, UNK
     Route: 048
     Dates: start: 20000101

REACTIONS (2)
  - BLOOD CREATINE PHOSPHOKINASE INCREASED [None]
  - UNEVALUABLE EVENT [None]
